FAERS Safety Report 26074857 (Version 3)
Quarter: 2025Q4

REPORT INFORMATION
  Report Type: Spontaneous
  Country: US (occurrence: US)
  Receive Date: 20251121
  Receipt Date: 20251218
  Transmission Date: 20260118
  Serious: No
  Sender: LUPIN
  Company Number: US-LUPIN PHARMACEUTICALS INC.-2025-10417

PATIENT

DRUGS (2)
  1. BOSENTAN [Suspect]
     Active Substance: BOSENTAN
     Indication: Pulmonary arterial hypertension
     Dosage: 8 MILLIGRAM, BID
     Route: 061
  2. BOSENTAN [Suspect]
     Active Substance: BOSENTAN
     Dosage: 16 MG, BID
     Route: 061

REACTIONS (1)
  - Off label use [Unknown]
